FAERS Safety Report 7778193-8 (Version None)
Quarter: 2011Q3

REPORT INFORMATION
  Report Type: 
  Country: None (occurrence: None)
  Receive Date: 20110926
  Receipt Date: 20110921
  Transmission Date: 20111222
  Serious: Yes (Other)
  Sender: FDA-Public Use
  Company Number: JP-EISAI INC-E2090-01699-SPO-JP

PATIENT
  Sex: Male

DRUGS (5)
  1. TSUMURA HOCHUEKKITO [Concomitant]
  2. ZONISAMIDE [Suspect]
     Indication: EPILEPSY
     Route: 048
     Dates: start: 20110611, end: 20110711
  3. LAC-B [Suspect]
     Dosage: 9 GM DAILY
     Route: 048
     Dates: start: 20110708, end: 20110711
  4. VALPROATE SODIUM [Concomitant]
  5. AM [Concomitant]
     Route: 048

REACTIONS (1)
  - STEVENS-JOHNSON SYNDROME [None]
